FAERS Safety Report 7820408-1 (Version None)
Quarter: 2011Q4

REPORT INFORMATION
  Report Type: 
  Country: None (occurrence: None)
  Receive Date: 20111018
  Receipt Date: 20111010
  Transmission Date: 20120403
  Serious: Yes (Other)
  Sender: FDA-Public Use
  Company Number: NL-BAXTER-2011BH029096

PATIENT
  Age: 43 Year
  Sex: Female

DRUGS (13)
  1. GAMMAGARD LIQUID [Suspect]
     Indication: OFF LABEL USE
     Route: 042
     Dates: start: 20100205
  2. GAMMAGARD LIQUID [Suspect]
     Route: 042
     Dates: start: 20110912, end: 20110912
  3. GAMMAGARD LIQUID [Suspect]
     Route: 042
     Dates: start: 20110901
  4. GAMMAGARD LIQUID [Suspect]
     Route: 042
     Dates: start: 20110901
  5. PREDNISONE [Concomitant]
     Indication: PRODUCT USED FOR UNKNOWN INDICATION
     Route: 065
  6. GAMMAGARD LIQUID [Suspect]
     Route: 042
     Dates: start: 20110901
  7. GAMMAGARD LIQUID [Suspect]
     Route: 042
     Dates: start: 20110901
  8. GAMMAGARD LIQUID [Suspect]
     Route: 042
     Dates: start: 20110912, end: 20110912
  9. GAMMAGARD LIQUID [Suspect]
     Route: 042
     Dates: start: 20110912, end: 20110912
  10. GAMMAGARD LIQUID [Suspect]
     Route: 042
     Dates: start: 20100205
  11. GAMMAGARD LIQUID [Suspect]
     Indication: CHRONIC INFLAMMATORY DEMYELINATING POLYRADICULONEUROPATHY
     Route: 042
     Dates: start: 20100205
  12. GAMMAGARD LIQUID [Suspect]
     Route: 042
     Dates: start: 20100205
  13. GAMMAGARD LIQUID [Suspect]
     Route: 042
     Dates: start: 20110912, end: 20110912

REACTIONS (4)
  - FALL [None]
  - BALANCE DISORDER [None]
  - LIMB DISCOMFORT [None]
  - LOWER LIMB FRACTURE [None]
